FAERS Safety Report 7013468-1 (Version None)
Quarter: 2010Q3

REPORT INFORMATION
  Report Type: 
  Country: None (occurrence: None)
  Receive Date: 20100924
  Receipt Date: 20100916
  Transmission Date: 20110219
  Serious: No
  Sender: FDA-Public Use
  Company Number: US-PFIZER INC-2010117997

PATIENT
  Sex: Male

DRUGS (1)
  1. NEURONTIN [Suspect]
     Dosage: UNK

REACTIONS (4)
  - ANXIETY [None]
  - GASTROINTESTINAL PAIN [None]
  - SOMNOLENCE [None]
  - STRESS [None]
